FAERS Safety Report 4931239-4 (Version None)
Quarter: 2006Q1

REPORT INFORMATION
  Report Type: 
  Country: None (occurrence: None)
  Receive Date: 20060302
  Receipt Date: 20051202
  Transmission Date: 20060701
  Serious: Yes (Hospitalization, Disabling)
  Sender: FDA-Public Use
  Company Number: US-MERCK-0512USA00478

PATIENT
  Age: 80 Year
  Sex: Female
  Weight: 70 kg

DRUGS (10)
  1. VIOXX [Suspect]
     Indication: ARTHRITIS
     Route: 048
     Dates: start: 20010101, end: 20030801
  2. ZESTRIL [Concomitant]
     Indication: HYPERTENSION
     Route: 065
     Dates: start: 20030605, end: 20051213
  3. LOPRESSOR [Concomitant]
     Indication: MYOCARDIAL INFARCTION
     Route: 065
     Dates: start: 20030605, end: 20051201
  4. LANOXIN [Concomitant]
     Indication: CHEST PAIN
     Route: 065
     Dates: start: 20030605
  5. LASIX [Concomitant]
     Indication: CARDIAC DISORDER
     Route: 065
     Dates: start: 20030605, end: 20051213
  6. ASPIRIN [Concomitant]
     Indication: PROPHYLAXIS
     Route: 065
     Dates: start: 20010101, end: 20051213
  7. ASPIRIN [Concomitant]
     Indication: ARTHRITIS
     Route: 065
     Dates: start: 20010101, end: 20051213
  8. [THERAPY UNSPECIFIED] [Concomitant]
     Indication: ANTIPLATELET THERAPY
     Route: 065
     Dates: start: 20030605, end: 20030628
  9. ZOCOR [Concomitant]
     Indication: BLOOD CHOLESTEROL INCREASED
     Route: 065
     Dates: start: 20030601, end: 20051201
  10. ACIPHEX [Concomitant]
     Route: 065

REACTIONS (7)
  - CARDIAC FAILURE CONGESTIVE [None]
  - CARDIAC MURMUR [None]
  - CARDIAC VALVE DISEASE [None]
  - MYOCARDIAL INFARCTION [None]
  - OEDEMA PERIPHERAL [None]
  - PYREXIA [None]
  - RESPIRATORY FAILURE [None]
